FAERS Safety Report 17549277 (Version 3)
Quarter: 2021Q3

REPORT INFORMATION
  Report Type: Spontaneous
  Country: FR (occurrence: FR)
  Receive Date: 20200317
  Receipt Date: 20210708
  Transmission Date: 20211014
  Serious: Yes (Disabling, Other)
  Sender: FDA-Public Use
  Company Number: FR-BRISTOL-MYERS SQUIBB COMPANY-BMS-2019-013199

PATIENT
  Age: 41 Year
  Sex: Male
  Weight: 68 kg

DRUGS (2)
  1. KENACORT [Suspect]
     Active Substance: TRIAMCINOLONE
     Indication: OCCUPATIONAL EXPOSURE TO PRODUCT
     Dosage: 1 DOSAGE FORM, 1 TOTAL
     Route: 047
     Dates: start: 20181219, end: 20181219
  2. KENACORT [Suspect]
     Active Substance: TRIAMCINOLONE
     Dosage: 1 DF, 1 TOTAL
     Route: 047
     Dates: start: 20190102, end: 20190102

REACTIONS (15)
  - Eye pain [Not Recovered/Not Resolved]
  - Conjunctival hyperaemia [Unknown]
  - Macular hole [Unknown]
  - Retinal scar [Unknown]
  - Corneal neovascularisation [Not Recovered/Not Resolved]
  - Photophobia [Not Recovered/Not Resolved]
  - Migraine [Unknown]
  - Blepharospasm [Unknown]
  - Optic disc drusen [Unknown]
  - Occupational exposure to product [Recovered/Resolved with Sequelae]
  - Presbyopia [Unknown]
  - Vitreous floaters [Not Recovered/Not Resolved]
  - Neovascularisation [Not Recovered/Not Resolved]
  - Visual acuity reduced [Unknown]
  - Ocular discomfort [Unknown]

NARRATIVE: CASE EVENT DATE: 20181219
